FAERS Safety Report 11984981 (Version 2)
Quarter: 2016Q2

REPORT INFORMATION
  Report Type: Report from Study
  Country: JP (occurrence: JP)
  Receive Date: 20160201
  Receipt Date: 20160511
  Transmission Date: 20160815
  Serious: No
  Sender: FDA-Public Use
  Company Number: JP-EISAI MEDICAL RESEARCH-EC-2016-014044

PATIENT
  Age: 59 Year
  Sex: Female
  Weight: 36 kg

DRUGS (9)
  1. CANDESARTAN [Concomitant]
     Active Substance: CANDESARTAN
  2. HIRUDOID [Concomitant]
     Active Substance: GLYCOSAMINOGLYCANS
  3. PYDOXAL [Concomitant]
     Active Substance: PYRIDOXAL
  4. UREA. [Concomitant]
     Active Substance: UREA
  5. LENVIMA [Suspect]
     Active Substance: LENVATINIB
     Dates: start: 20150626
  6. LEVOTHYROXINE SODIUM. [Concomitant]
     Active Substance: LEVOTHYROXINE SODIUM
  7. MYSER [Concomitant]
     Active Substance: DIFLUPREDNATE
  8. NORVASC [Concomitant]
     Active Substance: AMLODIPINE BESYLATE
  9. LENVIMA [Suspect]
     Active Substance: LENVATINIB
     Indication: PAPILLARY THYROID CANCER
     Dates: start: 20150616, end: 20150625

REACTIONS (1)
  - Hypertension [Recovering/Resolving]

NARRATIVE: CASE EVENT DATE: 20150625
